FAERS Safety Report 15927417 (Version 1)
Quarter: 2019Q1

REPORT INFORMATION
  Report Type: Spontaneous
  Country: FR (occurrence: FR)
  Receive Date: 20190206
  Receipt Date: 20190206
  Transmission Date: 20190417
  Serious: Yes (Other)
  Sender: FDA-Public Use
  Company Number: FR-ARRAY-2018-04913

PATIENT

DRUGS (10)
  1. RAMIPRIL. [Concomitant]
     Active Substance: RAMIPRIL
     Indication: EJECTION FRACTION DECREASED
     Dosage: 2.5 MG, QD
     Route: 048
     Dates: start: 20180313
  2. OXYCODONE [Concomitant]
     Active Substance: OXYCODONE
     Indication: GROIN PAIN
     Dosage: 20 MG TO 100 MG, QD
     Route: 048
     Dates: start: 20180917
  3. BRAFTOVI [Suspect]
     Active Substance: ENCORAFENIB
     Indication: MALIGNANT MELANOMA
     Dosage: 450 MG, QD
     Route: 048
     Dates: start: 20181130
  4. NALOXEGOL [Concomitant]
     Active Substance: NALOXEGOL
     Indication: CONSTIPATION
     Dosage: 25 MG, QD
     Route: 048
     Dates: start: 20181001
  5. MEKTOVI [Suspect]
     Active Substance: BINIMETINIB
     Dosage: 30 MG, BID
     Route: 048
     Dates: start: 20181210
  6. BRAFTOVI [Suspect]
     Active Substance: ENCORAFENIB
     Dosage: 450 MG, QD
     Route: 048
     Dates: start: 20181229
  7. RAMIPRIL. [Concomitant]
     Active Substance: RAMIPRIL
     Indication: CARDIAC FAILURE
  8. MEKTOVI [Suspect]
     Active Substance: BINIMETINIB
     Indication: MALIGNANT MELANOMA
     Dosage: 90 MG, QD
     Route: 048
     Dates: start: 20181130
  9. MEKTOVI [Suspect]
     Active Substance: BINIMETINIB
     Dosage: 90 MG, QD
     Route: 048
     Dates: start: 20181229
  10. BRAFTOVI [Suspect]
     Active Substance: ENCORAFENIB
     Dosage: 300 MG, QD
     Route: 048
     Dates: start: 20181210

REACTIONS (4)
  - Hyperhidrosis [Recovered/Resolved]
  - Asthenia [Recovering/Resolving]
  - Visual field defect [Recovering/Resolving]
  - Vision blurred [Recovering/Resolving]

NARRATIVE: CASE EVENT DATE: 20181201
